FAERS Safety Report 8081235-6 (Version None)
Quarter: 2012Q1

REPORT INFORMATION
  Report Type: 
  Country: None (occurrence: None)
  Receive Date: 20120130
  Receipt Date: 20120126
  Transmission Date: 20120608
  Serious: Yes (Hospitalization, Other)
  Sender: FDA-Public Use
  Company Number: US-JNJFOC-20120112514

PATIENT
  Age: 72 Year
  Sex: Male

DRUGS (9)
  1. LISINOPRIL [Concomitant]
  2. XARELTO [Suspect]
     Indication: ATRIAL FIBRILLATION
     Route: 048
     Dates: start: 20120112
  3. MAGNESIUM [Concomitant]
  4. HYDRALAZINE HCL [Concomitant]
  5. METOPROLOL TARTRATE [Concomitant]
  6. IRBESARTAN [Concomitant]
  7. MULTI-VITAMINS [Concomitant]
  8. CALCIUM [Concomitant]
  9. METFFORMIN HYDROCHLORIDE [Concomitant]

REACTIONS (5)
  - PNEUMONIA [None]
  - SEPTIC SHOCK [None]
  - CONTUSION [None]
  - ANKLE FRACTURE [None]
  - LIVER FUNCTION TEST ABNORMAL [None]
